FAERS Safety Report 5887372-6 (Version None)
Quarter: 2008Q3

REPORT INFORMATION
  Report Type: 
  Country: None (occurrence: None)
  Receive Date: 20080915
  Receipt Date: 20080910
  Transmission Date: 20090109
  Serious: Yes (Hospitalization)
  Sender: FDA-Public Use
  Company Number: 2008AL005225

PATIENT
  Age: 73 Year
  Sex: Female
  Weight: 85.7298 kg

DRUGS (5)
  1. DIGOXIN [Suspect]
     Indication: HEART RATE IRREGULAR
     Dosage: 0.25MG DAILY PO; SEVERAL YEARS
     Route: 048
  2. LASIX [Concomitant]
  3. POTASSIUM CHLORIDE [Concomitant]
  4. UNSPECIFIED DIABETES MEDICATIONS [Concomitant]
  5. UNSPECIFIED BLOOD PRESSURE MEDICATIONS [Concomitant]

REACTIONS (7)
  - ATRIOVENTRICULAR BLOCK [None]
  - CONDITION AGGRAVATED [None]
  - DIZZINESS [None]
  - HEADACHE [None]
  - HEART RATE IRREGULAR [None]
  - NAUSEA [None]
  - VISION BLURRED [None]
